FAERS Safety Report 12341310 (Version 1)
Quarter: 2016Q2

REPORT INFORMATION
  Report Type: Spontaneous
  Country: TW (occurrence: TW)
  Receive Date: 20160506
  Receipt Date: 20160506
  Transmission Date: 20160815
  Serious: Yes (Other)
  Sender: FDA-Public Use
  Company Number: TW-SA-2016SA085877

PATIENT
  Age: 14 Year
  Sex: Female

DRUGS (1)
  1. CEREZYME [Suspect]
     Active Substance: IMIGLUCERASE
     Indication: GAUCHER^S DISEASE
     Route: 042
     Dates: start: 201604

REACTIONS (3)
  - Waist circumference increased [Unknown]
  - Lymphoedema [Unknown]
  - Haemorrhoids [Unknown]
